FAERS Safety Report 13815541 (Version 1)
Quarter: 2017Q3

REPORT INFORMATION
  Report Type: Spontaneous
  Country: US (occurrence: US)
  Receive Date: 20170731
  Receipt Date: 20170731
  Transmission Date: 20171127
  Serious: Yes (Other)
  Sender: FDA-Public Use
  Company Number: US-LPDUSPRD-20171052

PATIENT
  Sex: Female

DRUGS (3)
  1. CYCLOPHOSPHAMIDE. [Suspect]
     Active Substance: CYCLOPHOSPHAMIDE
     Dosage: UNKNOWN
     Route: 065
  2. NO DRUG NAME [Suspect]
     Active Substance: UNSPECIFIED INGREDIENT
     Dosage: UNKNOWN
     Route: 065
  3. DACTINOMYCIN FOR INJECTION, USP (0517-0950-01 [Suspect]
     Active Substance: DACTINOMYCIN
     Dosage: UNKNOWN
     Route: 065

REACTIONS (3)
  - Necrotising colitis [Unknown]
  - Venoocclusive disease [Unknown]
  - Liver disorder [Unknown]
